FAERS Safety Report 10061981 (Version 1)
Quarter: 2014Q2

REPORT INFORMATION
  Report Type: Spontaneous
  Country: BR (occurrence: BR)
  Receive Date: 20140407
  Receipt Date: 20140407
  Transmission Date: 20141212
  Serious: Yes (Hospitalization)
  Sender: FDA-Public Use
  Company Number: BR-EISAI INC-E2020-13806-SPO-BR

PATIENT
  Sex: Female

DRUGS (1)
  1. ERANZ [Suspect]
     Indication: PRODUCT USED FOR UNKNOWN INDICATION
     Dosage: 10 MG DAILY
     Route: 048

REACTIONS (2)
  - Aspiration [Unknown]
  - Pyrexia [Unknown]
